FAERS Safety Report 10068701 (Version 1)
Quarter: 2014Q2

REPORT INFORMATION
  Report Type: Spontaneous
  Country: US (occurrence: US)
  Receive Date: 20140409
  Receipt Date: 20140409
  Transmission Date: 20141212
  Serious: No
  Sender: FDA-Public Use
  Company Number: US-MYLANLABS-2014S1003939

PATIENT
  Age: 80 Year
  Sex: Male
  Weight: 90.72 kg

DRUGS (4)
  1. METOPROLOL SUCCINATE EXTENDED-RELEASE TABLETS USP [Suspect]
     Indication: HEART RATE IRREGULAR
     Route: 048
     Dates: start: 20140115
  2. METOPROLOL SUCCINATE EXTENDED-RELEASE TABLETS USP [Suspect]
     Indication: OFF LABEL USE
     Route: 048
     Dates: start: 20140115
  3. SYNTHROID [Concomitant]
     Route: 048
  4. LISINOPRIL + HYDROCHLOROTHIAZIDE [Concomitant]
     Dosage: 10MG/12.5MG
     Route: 048

REACTIONS (2)
  - Aphthous stomatitis [Not Recovered/Not Resolved]
  - Tooth disorder [Not Recovered/Not Resolved]
